FAERS Safety Report 7519716-3 (Version None)
Quarter: 2011Q2

REPORT INFORMATION
  Report Type: 
  Country: None (occurrence: None)
  Receive Date: 20110602
  Receipt Date: 20110518
  Transmission Date: 20111010
  Serious: Yes (Hospitalization)
  Sender: FDA-Public Use
  Company Number: GB-WATSON-2011-07559

PATIENT
  Age: 2 Year
  Sex: Male

DRUGS (3)
  1. STIRIPENTOL [Suspect]
     Indication: PRODUCT USED FOR UNKNOWN INDICATION
     Dosage: UNK
  2. CLOBAZAM [Suspect]
     Indication: PRODUCT USED FOR UNKNOWN INDICATION
     Dosage: UNK
  3. DIVALPROEX SODIUM [Suspect]
     Indication: PRODUCT USED FOR UNKNOWN INDICATION
     Dosage: UNK

REACTIONS (5)
  - ENCEPHALOPATHY [None]
  - MUSCLE DISORDER [None]
  - CEREBELLAR ATROPHY [None]
  - BRONCHOPNEUMONIA [None]
  - MASTOIDITIS [None]
